FAERS Safety Report 4343592-3 (Version None)
Quarter: 2004Q2

REPORT INFORMATION
  Report Type: 
  Country: None (occurrence: None)
  Receive Date: 20040419
  Receipt Date: 20040407
  Transmission Date: 20050107
  Serious: Yes (Hospitalization)
  Sender: FDA-Public Use
  Company Number: US069749

PATIENT
  Age: 78 Year

DRUGS (5)
  1. ENBREL [Suspect]
     Indication: PSORIASIS
     Dosage: 25 MG, 2 IN 1 WEEKS, SC
     Route: 058
     Dates: start: 20040213, end: 20040316
  2. PROPRANOLOL HYDROCHLORIDE [Concomitant]
  3. PREMARIN WITH METHYLTESTOSTERONE [Concomitant]
  4. AMLODIPINE BESYLATE [Concomitant]
  5. VITAMIN CAP [Concomitant]

REACTIONS (2)
  - ABDOMINAL PAIN [None]
  - RESPIRATORY TRACT INFECTION VIRAL [None]
